FAERS Safety Report 10848489 (Version 1)
Quarter: 2015Q1

REPORT INFORMATION
  Report Type: Report from Study
  Country: CA (occurrence: CA)
  Receive Date: 20150220
  Receipt Date: 20150220
  Transmission Date: 20150721
  Serious: Yes (Hospitalization, Other)
  Sender: FDA-Public Use
  Company Number: CA-BRISTOL-MYERS SQUIBB COMPANY-BMS-2015-008645

PATIENT
  Age: 54 Year
  Sex: Male

DRUGS (3)
  1. DASATINIB [Suspect]
     Active Substance: DASATINIB
     Indication: CHRONIC MYELOID LEUKAEMIA
     Dosage: 60 MG, QD
     Route: 048
  2. COUMADINE [Suspect]
     Active Substance: WARFARIN SODIUM
     Indication: PRODUCT USED FOR UNKNOWN INDICATION
     Route: 065
  3. HEPARIN [Suspect]
     Active Substance: HEPARIN SODIUM
     Indication: PRODUCT USED FOR UNKNOWN INDICATION
     Route: 065

REACTIONS (5)
  - Pneumonia [Unknown]
  - Haemorrhage [Unknown]
  - Joint swelling [Unknown]
  - Cardiac disorder [Unknown]
  - Pulmonary oedema [Unknown]

NARRATIVE: CASE EVENT DATE: 201403
